FAERS Safety Report 15646669 (Version 2)
Quarter: 2024Q1

REPORT INFORMATION
  Report Type: Spontaneous
  Country: FR (occurrence: FR)
  Receive Date: 20181122
  Receipt Date: 20240216
  Transmission Date: 20240410
  Serious: Yes (Life-Threatening, Hospitalization, Other)
  Sender: FDA-Public Use
  Company Number: FR-AUROBINDO-AUR-APL-2018-056290

PATIENT
  Age: 66 Year
  Sex: Female

DRUGS (2)
  1. ACYCLOVIR [Suspect]
     Active Substance: ACYCLOVIR
     Indication: Tonsillitis
     Dosage: UNK
     Route: 048
     Dates: start: 20180805, end: 20180811
  2. AZITHROMYCIN [Suspect]
     Active Substance: AZITHROMYCIN
     Indication: Tonsillitis
     Dosage: UNK
     Route: 048
     Dates: start: 20180805, end: 20180811

REACTIONS (2)
  - Hepatitis fulminant [Recovering/Resolving]
  - Liver transplant [Recovering/Resolving]

NARRATIVE: CASE EVENT DATE: 20180825
